FAERS Safety Report 16667277 (Version 1)
Quarter: 2019Q3

REPORT INFORMATION
  Report Type: Spontaneous
  Country: GB (occurrence: GB)
  Receive Date: 20190805
  Receipt Date: 20190805
  Transmission Date: 20191004
  Serious: No
  Sender: FDA-Public Use
  Company Number: GB-ALKEM LABORATORIES LIMITED-GB-ALKEM-2018-08270

PATIENT

DRUGS (3)
  1. RITONAVIR. [Suspect]
     Active Substance: RITONAVIR
     Indication: ANTIVIRAL TREATMENT
     Dosage: 100 MG, BID
     Route: 065
  2. LOPINAVIR [Suspect]
     Active Substance: LOPINAVIR
     Indication: ANTIVIRAL TREATMENT
     Dosage: 400 MG, BID
     Route: 065
  3. LAMOTRIGINE. [Suspect]
     Active Substance: LAMOTRIGINE
     Indication: PRODUCT USED FOR UNKNOWN INDICATION
     Dosage: UNK
     Route: 065

REACTIONS (1)
  - Drug interaction [Unknown]
